FAERS Safety Report 12974413 (Version 2)
Quarter: 2017Q2

REPORT INFORMATION
  Report Type: Spontaneous
  Country: US (occurrence: US)
  Receive Date: 20161125
  Receipt Date: 20170413
  Transmission Date: 20170830
  Serious: Yes (Other)
  Sender: FDA-Public Use
  Company Number: US-TEVA-709914ACC

PATIENT
  Age: 25 Year
  Sex: Female
  Weight: 76.27 kg

DRUGS (2)
  1. PARAGARD T 380A [Suspect]
     Active Substance: COPPER
     Indication: CONTRACEPTION
     Dates: start: 20150828
  2. PARAGARD T 380A [Suspect]
     Active Substance: COPPER
     Dates: start: 20161121

REACTIONS (3)
  - Pelvic pain [Recovered/Resolved with Sequelae]
  - Abdominal pain lower [Recovered/Resolved]
  - Device dislocation [Recovered/Resolved with Sequelae]

NARRATIVE: CASE EVENT DATE: 20160909
